FAERS Safety Report 23738623 (Version 2)
Quarter: 2024Q2

REPORT INFORMATION
  Report Type: Spontaneous
  Country: RU (occurrence: RU)
  Receive Date: 20240412
  Receipt Date: 20240420
  Transmission Date: 20240716
  Serious: Yes (Hospitalization)
  Sender: FDA-Public Use
  Company Number: RU-SA-SAC20240409000682

PATIENT
  Age: 38 Year
  Sex: Male

DRUGS (2)
  1. APIDRA [Suspect]
     Active Substance: INSULIN GLULISINE
     Indication: Hypoinsulinaemia
     Dosage: 8 IU
     Route: 065
     Dates: end: 20240329
  2. NOVORAPID [Concomitant]
     Active Substance: INSULIN ASPART
     Indication: Hypoinsulinaemia
     Dosage: 8 IU
     Route: 058
     Dates: start: 20240401, end: 20240402

REACTIONS (1)
  - Hypoinsulinaemia [Recovering/Resolving]

NARRATIVE: CASE EVENT DATE: 20240329
